FAERS Safety Report 15600640 (Version 2)
Quarter: 2019Q1

REPORT INFORMATION
  Report Type: Spontaneous
  Country: US (occurrence: US)
  Receive Date: 20181109
  Receipt Date: 20190208
  Transmission Date: 20190417
  Serious: Yes (Hospitalization)
  Sender: FDA-Public Use
  Company Number: US-JNJFOC-20181039919

PATIENT
  Age: 52 Year
  Sex: Female
  Weight: 124.29 kg

DRUGS (1)
  1. XARELTO [Suspect]
     Active Substance: RIVAROXABAN
     Indication: DEEP VEIN THROMBOSIS
     Dosage: VARYING DOSES OF 15 MG AND 20 MG
     Route: 048
     Dates: start: 20170313, end: 20170705

REACTIONS (2)
  - Bleeding varicose vein [Recovering/Resolving]
  - Ulcer haemorrhage [Unknown]

NARRATIVE: CASE EVENT DATE: 20170322
